FAERS Safety Report 17723265 (Version 3)
Quarter: 2020Q2

REPORT INFORMATION
  Report Type: Spontaneous
  Country: US (occurrence: US)
  Receive Date: 20200429
  Receipt Date: 20200527
  Transmission Date: 20200714
  Serious: Yes (Disabling)
  Sender: FDA-Public Use
  Company Number: US-SA-2020SA110699

PATIENT
  Sex: Male

DRUGS (1)
  1. KEVZARA [Suspect]
     Active Substance: SARILUMAB
     Indication: TEMPORAL ARTERITIS

REACTIONS (8)
  - Stomatitis [Unknown]
  - Back pain [Unknown]
  - Product use in unapproved indication [Unknown]
  - Walking disability [Unknown]
  - Dyspnoea [Unknown]
  - Alopecia [Unknown]
  - Decubitus ulcer [Unknown]
  - Yellow skin [Unknown]
